FAERS Safety Report 18835467 (Version 1)
Quarter: 2021Q1

REPORT INFORMATION
  Report Type: Spontaneous
  Country: NL (occurrence: NL)
  Receive Date: 20210203
  Receipt Date: 20210203
  Transmission Date: 20210419
  Serious: Yes (Hospitalization)
  Sender: FDA-Public Use
  Company Number: NL-ACCORD-215487

PATIENT
  Age: 37 Year
  Sex: Male

DRUGS (3)
  1. COCAINE [Suspect]
     Active Substance: COCAINE
     Indication: PRODUCT USED FOR UNKNOWN INDICATION
     Dosage: 0.5 GRAM COCAINE AT 21.00 H
  2. HYDROCHLOROTHIAZIDE. [Suspect]
     Active Substance: HYDROCHLOROTHIAZIDE
     Indication: PRODUCT USED FOR UNKNOWN INDICATION
     Dosage: 14 TABLETS OF 12.5 MG HYDROCHLOROTHIAZIDE (PRESCRIBED TO HIS MOTHER) AT 22.30 H
  3. TERIFLUNOMIDE. [Suspect]
     Active Substance: TERIFLUNOMIDE
     Indication: RELAPSING-REMITTING MULTIPLE SCLEROSIS
     Dosage: 48 TABLETS OF 14 MG (672 MG)

REACTIONS (4)
  - Toxicity to various agents [Unknown]
  - Polyuria [Unknown]
  - Headache [Unknown]
  - Overdose [Unknown]
